FAERS Safety Report 14740767 (Version 4)
Quarter: 2018Q3

REPORT INFORMATION
  Report Type: Spontaneous
  Country: DE (occurrence: DE)
  Receive Date: 20180410
  Receipt Date: 20180830
  Transmission Date: 20181010
  Serious: Yes (Other)
  Sender: FDA-Public Use
  Company Number: DE-BAUSCH-BL-2018-009393

PATIENT
  Age: 67 Year
  Sex: Female

DRUGS (7)
  1. OMEPRAZOLE. [Concomitant]
     Active Substance: OMEPRAZOLE
     Indication: PRODUCT USED FOR UNKNOWN INDICATION
  2. L?THYROXINE [Concomitant]
     Active Substance: LEVOTHYROXINE
     Indication: PRODUCT USED FOR UNKNOWN INDICATION
  3. ZYCLARA [Suspect]
     Active Substance: IMIQUIMOD
     Indication: ACTINIC KERATOSIS
     Route: 061
     Dates: start: 20180313, end: 20180325
  4. ERYTHROMYCIN. [Concomitant]
     Active Substance: ERYTHROMYCIN
     Indication: PRODUCT USED FOR UNKNOWN INDICATION
  5. OCTENISAN [Concomitant]
     Indication: PRODUCT USED FOR UNKNOWN INDICATION
  6. IBUPROFEN. [Concomitant]
     Active Substance: IBUPROFEN
     Indication: PRODUCT USED FOR UNKNOWN INDICATION
  7. FUCIDINE [Concomitant]
     Active Substance: FUSIDIC ACID
     Indication: PRODUCT USED FOR UNKNOWN INDICATION

REACTIONS (15)
  - Skin disorder [Recovered/Resolved]
  - Chills [Recovered/Resolved]
  - Condition aggravated [Not Recovered/Not Resolved]
  - Face injury [Recovered/Resolved with Sequelae]
  - Facial wasting [Recovered/Resolved]
  - Swelling face [Recovered/Resolved]
  - Alopecia [Recovering/Resolving]
  - Rash papular [Not Recovered/Not Resolved]
  - Insomnia [Recovered/Resolved]
  - Ageusia [Recovered/Resolved]
  - Pain in extremity [Recovered/Resolved]
  - Erythema [Recovered/Resolved]
  - Decreased appetite [Recovered/Resolved]
  - Pyrexia [Recovered/Resolved]
  - Fatigue [Recovered/Resolved]

NARRATIVE: CASE EVENT DATE: 2018
